FAERS Safety Report 7307870-8 (Version None)
Quarter: 2011Q1

REPORT INFORMATION
  Report Type: 
  Country: None (occurrence: None)
  Receive Date: 20110210
  Receipt Date: 20110120
  Transmission Date: 20110831
  Serious: Yes (Death)
  Sender: FDA-Public Use
  Company Number: AE11-016-14

PATIENT
  Sex: Female

DRUGS (10)
  1. DIAZEPAM [Suspect]
  2. DEXTROMETHORPHAN HYDROBROMIDE [Suspect]
  3. TOPIRAMATE [Suspect]
  4. ZOLPIDEM [Suspect]
  5. LORCET-HD [Suspect]
  6. DOXYLAMINE [Suspect]
  7. PREGABALIN [Suspect]
  8. DULOXETINE [Suspect]
  9. BENZODIAZEPINE [Suspect]
  10. RIZATRIPTAN BENZOATE [Suspect]

REACTIONS (3)
  - COMPLETED SUICIDE [None]
  - MULTIPLE DRUG OVERDOSE INTENTIONAL [None]
  - CARDIO-RESPIRATORY ARREST [None]
